FAERS Safety Report 13657682 (Version 4)
Quarter: 2017Q4

REPORT INFORMATION
  Report Type: Spontaneous
  Country: AU (occurrence: AU)
  Receive Date: 20170615
  Receipt Date: 20171009
  Transmission Date: 20180320
  Serious: Yes (Hospitalization, Disabling)
  Sender: FDA-Public Use
  Company Number: AU-IPSEN BIOPHARMACEUTICALS, INC.-2017-05389

PATIENT
  Age: 55 Year
  Sex: Female

DRUGS (2)
  1. DYSPORT [Suspect]
     Active Substance: ABOBOTULINUMTOXINA
     Indication: SKIN WRINKLING
     Dosage: 95 UNITS
     Route: 065
     Dates: start: 20170603, end: 20170603
  2. DYSPORT [Suspect]
     Active Substance: ABOBOTULINUMTOXINA
     Indication: SKIN WRINKLING

REACTIONS (25)
  - Economic problem [Recovering/Resolving]
  - Tension [Recovering/Resolving]
  - Palpitations [Recovering/Resolving]
  - Nervous system disorder [Recovering/Resolving]
  - Muscle twitching [Recovering/Resolving]
  - Asthenia [Recovering/Resolving]
  - Fatigue [Recovering/Resolving]
  - Injection site paraesthesia [Recovering/Resolving]
  - Paraesthesia [Recovering/Resolving]
  - Insomnia [Recovering/Resolving]
  - Muscle tightness [Recovering/Resolving]
  - Anxiety [Recovering/Resolving]
  - Headache [Recovering/Resolving]
  - Depression [Recovering/Resolving]
  - Restless legs syndrome [Recovering/Resolving]
  - Hot flush [Recovered/Resolved]
  - Injection site bruising [Recovering/Resolving]
  - Malaise [Recovering/Resolving]
  - Tremor [Recovering/Resolving]
  - Fear [Recovering/Resolving]
  - Muscle contractions involuntary [Recovering/Resolving]
  - Emotional distress [Recovering/Resolving]
  - Pain in extremity [Recovering/Resolving]
  - Chest discomfort [Recovering/Resolving]
  - Injection site swelling [Recovering/Resolving]

NARRATIVE: CASE EVENT DATE: 2017
